FAERS Safety Report 7683231-7 (Version None)
Quarter: 2011Q3

REPORT INFORMATION
  Report Type: 
  Country: None (occurrence: None)
  Receive Date: 20110815
  Receipt Date: 20110124
  Transmission Date: 20111222
  Serious: Yes (Hospitalization)
  Sender: FDA-Public Use
  Company Number: US-BAXTER-2010BH029333

PATIENT
  Sex: Male

DRUGS (1)
  1. DIANEAL [Suspect]
     Indication: PERITONEAL DIALYSIS
     Route: 033
     Dates: end: 20101201

REACTIONS (6)
  - ABDOMINAL PAIN [None]
  - PERITONEAL DIALYSIS COMPLICATION [None]
  - STAPHYLOCOCCUS TEST POSITIVE [None]
  - PERITONITIS BACTERIAL [None]
  - CHOLELITHIASIS [None]
  - ADHESION [None]
